FAERS Safety Report 10279939 (Version 1)
Quarter: 2014Q3

REPORT INFORMATION
  Report Type: Spontaneous
  Country: US (occurrence: US)
  Receive Date: 20140707
  Receipt Date: 20140707
  Transmission Date: 20150326
  Serious: Yes (Other)
  Sender: FDA-Public Use
  Company Number: US-PFIZER INC-2014182555

PATIENT
  Age: 40 Year
  Sex: Female
  Weight: 95.24 kg

DRUGS (3)
  1. LEVOTHROID [Concomitant]
     Active Substance: LEVOTHYROXINE SODIUM
     Indication: HYPOTHYROIDISM
     Dosage: UNK
  2. MAXZIDE [Concomitant]
     Active Substance: HYDROCHLOROTHIAZIDE\TRIAMTERENE
     Indication: BLOOD PRESSURE INCREASED
     Dosage: 18.75 MG (37.5MG HALF TABLET) , 1X/DAY
  3. PRISTIQ EXTENDED RELEASE [Suspect]
     Active Substance: DESVENLAFAXINE SUCCINATE
     Dosage: 50 MG, 1X/DAY
     Route: 048
     Dates: end: 201312

REACTIONS (1)
  - Uterine disorder [Unknown]

NARRATIVE: CASE EVENT DATE: 20140619
